FAERS Safety Report 20350144 (Version 2)
Quarter: 2022Q1

REPORT INFORMATION
  Report Type: Report from Study
  Country: US (occurrence: US)
  Receive Date: 20220119
  Receipt Date: 20220128
  Transmission Date: 20220423
  Serious: Yes (Hospitalization, Other)
  Sender: FDA-Public Use
  Company Number: US-ABBVIE-22K-163-4236827-00

PATIENT
  Sex: Female
  Weight: 62.198 kg

DRUGS (1)
  1. ORILISSA [Suspect]
     Active Substance: ELAGOLIX SODIUM
     Indication: Product used for unknown indication
     Route: 048
     Dates: start: 20211105

REACTIONS (11)
  - General symptom [Not Recovered/Not Resolved]
  - Anaemia [Unknown]
  - Haemoglobin decreased [Unknown]
  - Feeling abnormal [Unknown]
  - Anxiety [Unknown]
  - Agitation [Unknown]
  - Paranoia [Unknown]
  - Mood swings [Unknown]
  - Maternal exposure during pregnancy [Unknown]
  - Depression [Unknown]
  - Polymenorrhoea [Recovering/Resolving]
